FAERS Safety Report 14248871 (Version 1)
Quarter: 2017Q4

REPORT INFORMATION
  Report Type: Spontaneous
  Country: BR (occurrence: BR)
  Receive Date: 20171204
  Receipt Date: 20171204
  Transmission Date: 20180321
  Serious: Yes (Hospitalization, Other)
  Sender: FDA-Public Use
  Company Number: BR-PFIZER INC-2017511516

PATIENT
  Age: 39 Year
  Sex: Male

DRUGS (1)
  1. XALATAN [Suspect]
     Active Substance: LATANOPROST
     Indication: GLAUCOMA
     Dosage: 1 DROP IN BOTH EYES AT NIGHT

REACTIONS (4)
  - Fatigue [Recovering/Resolving]
  - Cardiac amyloidosis [Not Recovered/Not Resolved]
  - Renal disorder [Unknown]
  - Cataract [Unknown]

NARRATIVE: CASE EVENT DATE: 2013
